FAERS Safety Report 12594947 (Version 1)
Quarter: 2016Q3

REPORT INFORMATION
  Report Type: Spontaneous
  Country: US (occurrence: US)
  Receive Date: 20160726
  Receipt Date: 20160726
  Transmission Date: 20161109
  Serious: Yes (Hospitalization)
  Sender: FDA-Public Use
  Company Number: US-BAYER-2016-139280

PATIENT
  Age: 35 Year
  Sex: Female

DRUGS (2)
  1. PRASUGREL [Concomitant]
     Active Substance: PRASUGREL
     Indication: ANTIPLATELET THERAPY
  2. ACETYLSALICYLIC ACID({=100 MG) [Suspect]
     Active Substance: ASPIRIN
     Indication: ANTIPLATELET THERAPY
     Dosage: UNK

REACTIONS (4)
  - Arrested labour [None]
  - Foetal distress syndrome [None]
  - Pre-eclampsia [None]
  - Maternal exposure during pregnancy [None]
